FAERS Safety Report 17761465 (Version 2)
Quarter: 2020Q3

REPORT INFORMATION
  Report Type: Report from Study
  Country: None (occurrence: US)
  Receive Date: 20200508
  Receipt Date: 20200709
  Transmission Date: 20201102
  Serious: Yes (Other)
  Sender: FDA-Public Use
  Company Number: US-ABBVIE-20K-163-3396127-00

PATIENT
  Sex: Female

DRUGS (1)
  1. HUMIRA [Suspect]
     Active Substance: ADALIMUMAB
     Indication: CROHN^S DISEASE
     Dosage: CITRATE FREE
     Route: 058

REACTIONS (7)
  - Temperature intolerance [Unknown]
  - Near death experience [Recovered/Resolved]
  - CREST syndrome [Unknown]
  - Blood iron decreased [Unknown]
  - Rash macular [Unknown]
  - Intestinal resection [Recovered/Resolved]
  - Procedural complication [Recovered/Resolved]
